FAERS Safety Report 13920232 (Version 1)
Quarter: 2017Q3

REPORT INFORMATION
  Report Type: Spontaneous
  Country: US (occurrence: US)
  Receive Date: 20170830
  Receipt Date: 20170830
  Transmission Date: 20171127
  Serious: No
  Sender: FDA-Public Use
  Company Number: US-PFIZER INC-2016364548

PATIENT
  Age: 60 Year
  Sex: Female

DRUGS (3)
  1. AMLODIPINE BESILATE [Suspect]
     Active Substance: AMLODIPINE BESYLATE
     Dosage: UNK
  2. MELATONIN [Suspect]
     Active Substance: MELATONIN
     Dosage: UNK
  3. THEANINE [Suspect]
     Active Substance: THEANINE
     Dosage: UNK

REACTIONS (1)
  - Drug hypersensitivity [Unknown]
